FAERS Safety Report 8981496 (Version 2)
Quarter: 2013Q2

REPORT INFORMATION
  Report Type: Spontaneous
  Country: GB (occurrence: GB)
  Receive Date: 20121221
  Receipt Date: 20130410
  Transmission Date: 20140414
  Serious: Yes (Other)
  Sender: FDA-Public Use
  Company Number: GB-MYLANLABS-2012S1025604

PATIENT
  Age: 55 Year
  Sex: Male

DRUGS (9)
  1. AMLODIPINE [Suspect]
     Indication: HYPERTENSION
     Route: 048
     Dates: end: 20120711
  2. AMLODIPINE [Suspect]
     Indication: HYPERTENSION
     Route: 048
  3. LERCANIDIPINE [Suspect]
     Indication: BLOOD PRESSURE
     Route: 048
  4. LOSARTAN [Suspect]
     Indication: BLOOD PRESSURE
     Route: 048
  5. SIMVASTATIN [Suspect]
     Indication: BLOOD CHOLESTEROL INCREASED
     Route: 048
     Dates: start: 20110613, end: 20120925
  6. RAMIPRIL [Suspect]
     Indication: HYPERTENSION
     Route: 048
  7. RAMIPRIL [Suspect]
     Indication: HYPERTENSION
     Route: 048
  8. RAMIPRIL [Suspect]
     Indication: HYPERTENSION
     Route: 048
     Dates: end: 20120711
  9. PRAVASTATIN [Suspect]
     Indication: PRODUCT USED FOR UNKNOWN INDICATION
     Dates: end: 20121206

REACTIONS (15)
  - Confusional state [Unknown]
  - Dysstasia [Unknown]
  - Drug interaction [Unknown]
  - Depressed mood [Unknown]
  - Blood pressure increased [Unknown]
  - Cough [Unknown]
  - Myalgia [Unknown]
  - Mental impairment [Unknown]
  - Nightmare [Unknown]
  - Osteoarthritis [Unknown]
  - Dyspnoea [Unknown]
  - Fatigue [Unknown]
  - Gait disturbance [Unknown]
  - Feeling abnormal [Unknown]
  - Product quality issue [Unknown]
